FAERS Safety Report 16450496 (Version 1)
Quarter: 2019Q2

REPORT INFORMATION
  Report Type: Spontaneous
  Country: US (occurrence: US)
  Receive Date: 20190619
  Receipt Date: 20190619
  Transmission Date: 20190711
  Serious: No
  Sender: FDA-Public Use
  Company Number: US-GALDERMA-US18038438

PATIENT
  Age: 14 Year
  Sex: Male

DRUGS (5)
  1. VITAMINS [Concomitant]
     Active Substance: VITAMINS
  2. PROACTIV MD DEEP CLEANSING FACE WASH [Concomitant]
     Active Substance: COSMETICS
     Indication: ACNE
     Route: 061
     Dates: start: 201803, end: 20180601
  3. PPROACTIV MD BALANCING TONER [Concomitant]
     Indication: ACNE
     Route: 061
     Dates: start: 201803, end: 20180601
  4. PROACTIV MD ADAPALENE ACNE TREATMENT [Suspect]
     Active Substance: ADAPALENE
     Indication: ACNE
     Dosage: 0.1%
     Route: 061
     Dates: start: 201803, end: 20180601
  5. PROACTIV MD DAILY OIL CONTROL SPF 30 [Suspect]
     Active Substance: AVOBENZONE\OCTISALATE\OCTOCRYLENE
     Indication: ACNE
     Route: 061
     Dates: start: 201803, end: 20180601

REACTIONS (6)
  - Pain of skin [Recovered/Resolved]
  - Acne [Recovered/Resolved]
  - Blister [Recovered/Resolved]
  - Scar [Recovered/Resolved]
  - Erythema [Recovered/Resolved]
  - Skin warm [Recovered/Resolved]

NARRATIVE: CASE EVENT DATE: 20180601
